FAERS Safety Report 7464644-5 (Version None)
Quarter: 2011Q2

REPORT INFORMATION
  Report Type: 
  Country: None (occurrence: None)
  Receive Date: 20110509
  Receipt Date: 20101104
  Transmission Date: 20111010
  Serious: No
  Sender: FDA-Public Use
  Company Number: US-BAYER-201041167NA

PATIENT
  Sex: Female

DRUGS (2)
  1. YAZ [Suspect]
  2. YAZ [Suspect]

REACTIONS (2)
  - ANXIETY [None]
  - HEADACHE [None]
